FAERS Safety Report 10095526 (Version 2)
Quarter: 2014Q2

REPORT INFORMATION
  Report Type: Spontaneous
  Country: US (occurrence: US)
  Receive Date: 20140422
  Receipt Date: 20140515
  Transmission Date: 20141212
  Serious: Yes (Hospitalization, Other)
  Sender: FDA-Public Use
  Company Number: US-PFIZER INC-2014109400

PATIENT
  Age: 54 Year
  Sex: Female
  Weight: 55.33 kg

DRUGS (2)
  1. TOVIAZ [Suspect]
     Indication: POLLAKIURIA
     Dosage: 8 MG, DAILY
     Route: 048
  2. TOVIAZ [Suspect]
     Indication: HYPERTONIC BLADDER

REACTIONS (2)
  - Urinary tract infection [Recovered/Resolved]
  - Escherichia sepsis [Unknown]
